FAERS Safety Report 12451373 (Version 1)
Quarter: 2016Q2

REPORT INFORMATION
  Report Type: Spontaneous
  Country: JP (occurrence: JP)
  Receive Date: 20160609
  Receipt Date: 20160609
  Transmission Date: 20160815
  Serious: Yes (Hospitalization, Other)
  Sender: FDA-Public Use
  Company Number: JP-TEVA-662293ISR

PATIENT
  Age: 32 Year
  Sex: Male
  Weight: 81 kg

DRUGS (11)
  1. CISPLATIN. [Suspect]
     Active Substance: CISPLATIN
     Indication: METASTATIC CHORIOCARCINOMA
     Dosage: 42.8571  DAILY; DAY 1
  2. GRANULOCYTE COLONY-STIMULATING FACTOR [Concomitant]
     Active Substance: GRANULOCYTE COLONY-STIMULATING FACTOR NOS
     Indication: PROPHYLAXIS
     Dosage: TWO CYCLES EVERY 3 WEEKS
  3. ETOPOSIDE. [Concomitant]
     Active Substance: ETOPOSIDE
     Indication: METASTATIC CHORIOCARCINOMA
     Dosage: TWO CYCLES EVERY 3 WEEKS
  4. OXALIPLATIN. [Concomitant]
     Active Substance: OXALIPLATIN
     Indication: METASTATIC CHORIOCARCINOMA
     Dosage: TWO CYCLES EVERY 3 WEEKS
  5. BLEOMYCIN [Concomitant]
     Active Substance: BLEOMYCIN SULFATE
     Indication: METASTATIC CHORIOCARCINOMA
     Dosage: INFUSION
  6. IFOSFAMIDE. [Concomitant]
     Active Substance: IFOSFAMIDE
     Indication: METASTATIC CHORIOCARCINOMA
     Dosage: 2 G/M2 ON DAYS 10, 12 AND 14
  7. GRANULOCYTE COLONY-STIMULATING FACTOR [Concomitant]
     Active Substance: GRANULOCYTE COLONY-STIMULATING FACTOR NOS
  8. PACLITAXEL. [Concomitant]
     Active Substance: PACLITAXEL
     Indication: METASTATIC CHORIOCARCINOMA
     Dosage: TWO CYCLES EVERY 3 WEEKS
  9. CISPLATIN. [Suspect]
     Active Substance: CISPLATIN
     Dosage: TWO CYCLES EVERY 3 WEEKS
  10. BLEOMYCIN [Concomitant]
     Active Substance: BLEOMYCIN SULFATE
     Dosage: 1.4286  DAILY; TWO CYCLES EVERY 3 WEEKS; MODIFIED BEP REGIMEN (DAY 1)
  11. MESNA. [Concomitant]
     Active Substance: MESNA
     Indication: PROPHYLAXIS

REACTIONS (3)
  - Tumour lysis syndrome [Unknown]
  - Hyperuricaemia [Recovering/Resolving]
  - Acute kidney injury [Recovering/Resolving]
